FAERS Safety Report 9381425 (Version 10)
Quarter: 2015Q3

REPORT INFORMATION
  Report Type: Report from Study
  Country: CA (occurrence: CA)
  Receive Date: 20130703
  Receipt Date: 20150923
  Transmission Date: 20151125
  Serious: Yes (Life-Threatening, Hospitalization, Other)
  Sender: FDA-Public Use
  Company Number: PHHY2012CA050500

PATIENT
  Age: 59 Year
  Sex: Female

DRUGS (3)
  1. SANDOSTATIN LAR DEPOT [Suspect]
     Active Substance: OCTREOTIDE ACETATE
     Indication: CARCINOID TUMOUR
     Dosage: 30 MG, QMO (EVERY 4 WEEKS)
     Route: 030
     Dates: start: 19991201
  2. SANDOSTATIN LAR DEPOT [Suspect]
     Active Substance: OCTREOTIDE ACETATE
     Dosage: 20 MG, QMO
     Route: 030
  3. SANDOSTATIN LAR DEPOT [Suspect]
     Active Substance: OCTREOTIDE ACETATE
     Dosage: 30 MG, QMO (EVERY 4 WEEKS)
     Route: 030
     Dates: end: 20150828

REACTIONS (22)
  - Injection site discolouration [Unknown]
  - Injection site pain [Unknown]
  - Feeling abnormal [Unknown]
  - Malaise [Unknown]
  - Metastases to liver [Unknown]
  - Pain in extremity [Unknown]
  - Blood pressure decreased [Unknown]
  - Ascites [Unknown]
  - Malignant neoplasm progression [Unknown]
  - Heart rate decreased [Unknown]
  - Back pain [Unknown]
  - Hypokinesia [Unknown]
  - Blindness transient [Unknown]
  - Injection site mass [Unknown]
  - Hypoglycaemia [Unknown]
  - Visual impairment [Unknown]
  - Asthenia [Unknown]
  - Infection [Unknown]
  - Dyspnoea [Unknown]
  - Dizziness [Unknown]
  - Fatigue [Unknown]
  - Abdominal pain [Unknown]

NARRATIVE: CASE EVENT DATE: 2007
